FAERS Safety Report 19000359 (Version 2)
Quarter: 2021Q1

REPORT INFORMATION
  Report Type: Spontaneous
  Country: US (occurrence: US)
  Receive Date: 20210311
  Receipt Date: 20210312
  Transmission Date: 20210420
  Serious: Yes (Hospitalization, Other)
  Sender: FDA-Public Use
  Company Number: US-ASTRAZENECA-2021A102104

PATIENT
  Age: 84 Year
  Sex: Male
  Weight: 67.7 kg

DRUGS (7)
  1. CREON [Concomitant]
     Active Substance: PANCRELIPASE AMYLASE\PANCRELIPASE LIPASE\PANCRELIPASE PROTEASE
     Indication: ADENOCARCINOMA
     Dates: start: 20190102
  2. ELIQUIS [Concomitant]
     Active Substance: APIXABAN
     Indication: ATRIAL FIBRILLATION
     Dates: start: 20160518
  3. METOPROLOL SUCCINATE. [Suspect]
     Active Substance: METOPROLOL SUCCINATE
     Indication: CARDIAC FAILURE
     Dosage: 100 MG
     Route: 048
     Dates: start: 20161206, end: 20200304
  4. SPIRONOLACTONE. [Concomitant]
     Active Substance: SPIRONOLACTONE
     Indication: CARDIAC FAILURE
     Dates: start: 20190903
  5. OMEPRAZOLE. [Suspect]
     Active Substance: OMEPRAZOLE
     Indication: ADENOCARCINOMA
     Route: 048
     Dates: start: 20131031
  6. TAFAMIDIS MEGLUMINE [Suspect]
     Active Substance: TAFAMIDIS MEGLUMINE
     Indication: CARDIAC AMYLOIDOSIS
     Route: 048
     Dates: start: 20190119
  7. LASIX [Suspect]
     Active Substance: FUROSEMIDE
     Indication: CARDIAC FAILURE
     Route: 048
     Dates: start: 20180830, end: 20200304

REACTIONS (14)
  - Cardiac amyloidosis [Unknown]
  - Neck pain [Unknown]
  - Tachycardia [Recovered/Resolved]
  - Limb injury [Unknown]
  - Swelling [Unknown]
  - Dizziness [Recovered/Resolved]
  - Splint application [Unknown]
  - Syncope [Recovered/Resolved]
  - Pelvic fracture [Unknown]
  - Pain [Recovered/Resolved]
  - Fall [Unknown]
  - Humerus fracture [Recovering/Resolving]
  - Cardiac failure [Unknown]
  - Orthostatic hypotension [Recovered/Resolved]

NARRATIVE: CASE EVENT DATE: 20200305
